FAERS Safety Report 14258316 (Version 1)
Quarter: 2017Q4

REPORT INFORMATION
  Report Type: Spontaneous
  Country: US (occurrence: US)
  Receive Date: 20171206
  Receipt Date: 20171206
  Transmission Date: 20180321
  Serious: Yes (Disabling)
  Sender: FDA-Public Use
  Company Number: None

PATIENT
  Age: 55 Year
  Sex: Male
  Weight: 78.75 kg

DRUGS (1)
  1. TRAMADOL. [Suspect]
     Active Substance: TRAMADOL
     Indication: PAIN
     Route: 048

REACTIONS (7)
  - Visual impairment [None]
  - Amnesia [None]
  - Ataxia [None]
  - Pain [None]
  - Affective disorder [None]
  - Tic [None]
  - Speech disorder [None]

NARRATIVE: CASE EVENT DATE: 20170915
